FAERS Safety Report 7145391-6 (Version None)
Quarter: 2010Q4

REPORT INFORMATION
  Report Type: 
  Country: None (occurrence: None)
  Receive Date: 20101208
  Receipt Date: 20101203
  Transmission Date: 20110411
  Serious: Yes (Hospitalization, Other)
  Sender: FDA-Public Use
  Company Number: DE-AMGEN-QUU435610

PATIENT

DRUGS (6)
  1. NPLATE [Suspect]
     Indication: IDIOPATHIC THROMBOCYTOPENIC PURPURA
     Dosage: UNK
     Dates: start: 20100421, end: 20101103
  2. CORTISONE [Concomitant]
  3. PLATELETS, CONCENTRATED [Concomitant]
  4. OMEPRAZOL                          /00661201/ [Concomitant]
     Dosage: 40 MG, UNK
  5. METOPROLOL [Concomitant]
     Dosage: 47.5 MG, UNK
  6. ENOXAPARIN SODIUM [Concomitant]
     Dosage: 40 MG, UNK
     Route: 058

REACTIONS (8)
  - APHAGIA [None]
  - GINGIVAL BLISTER [None]
  - MENORRHAGIA [None]
  - MOUTH HAEMORRHAGE [None]
  - PETECHIAE [None]
  - PLATELET COUNT DECREASED [None]
  - SPLENECTOMY [None]
  - THERAPEUTIC RESPONSE DECREASED [None]
